FAERS Safety Report 18377837 (Version 2)
Quarter: 2020Q4

REPORT INFORMATION
  Report Type: Spontaneous
  Country: JP (occurrence: JP)
  Receive Date: 20201013
  Receipt Date: 20201024
  Transmission Date: 20210114
  Serious: Yes (Death)
  Sender: FDA-Public Use
  Company Number: JP-NOVOPROD-757848

PATIENT
  Age: 8 Decade
  Sex: Male
  Weight: 80.5 kg

DRUGS (1)
  1. NOVOSEVEN [Suspect]
     Active Substance: COAGULATION FACTOR VIIA RECOMBINANT HUMAN
     Indication: ACQUIRED HAEMOPHILIA
     Dosage: 80 MG
     Route: 042
     Dates: start: 20200917, end: 20200930

REACTIONS (2)
  - Drug effect less than expected [Fatal]
  - Exsanguination [Fatal]

NARRATIVE: CASE EVENT DATE: 20200930
